FAERS Safety Report 5795617-6 (Version None)
Quarter: 2008Q2

REPORT INFORMATION
  Report Type: 
  Country: None (occurrence: None)
  Receive Date: 20080630
  Receipt Date: 20080618
  Transmission Date: 20081010
  Serious: Yes (Other)
  Sender: FDA-Public Use
  Company Number: US-PFIZER INC-2008052398

PATIENT
  Sex: Female
  Weight: 75.8 kg

DRUGS (8)
  1. LYRICA [Suspect]
     Indication: FIBROMYALGIA
     Dates: start: 20080101, end: 20080101
  2. ALEVE [Concomitant]
  3. IBUROFEN [Concomitant]
  4. CITALOPRAM HYDROBROMIDE [Concomitant]
  5. TRAMADOL HCL [Concomitant]
  6. CYCLOBENZAPRINE HCL [Concomitant]
  7. LORAZEPAM [Concomitant]
  8. PROPRANOLOL [Concomitant]
     Indication: HYPERTENSION

REACTIONS (13)
  - BLOOD PRESSURE INCREASED [None]
  - BODY HEIGHT DECREASED [None]
  - CHEST PAIN [None]
  - FALL [None]
  - GASTRIC NEOPLASM [None]
  - HAEMATOMA [None]
  - HEAD INJURY [None]
  - HYPERSENSITIVITY [None]
  - MENTAL IMPAIRMENT [None]
  - MUSCULAR WEAKNESS [None]
  - OEDEMA PERIPHERAL [None]
  - SWELLING FACE [None]
  - WEIGHT INCREASED [None]
